FAERS Safety Report 7276548-1 (Version None)
Quarter: 2011Q1

REPORT INFORMATION
  Report Type: 
  Country: None (occurrence: None)
  Receive Date: 20110204
  Receipt Date: 20110124
  Transmission Date: 20110831
  Serious: Yes (Hospitalization)
  Sender: FDA-Public Use
  Company Number: BE-CELGENEUS-013-C5013-10062655

PATIENT
  Sex: Male
  Weight: 78.8 kg

DRUGS (37)
  1. CACIT VITAMIN D3 [Concomitant]
     Indication: VITAMIN SUPPLEMENTATION
     Route: 048
     Dates: start: 20100503
  2. PARACETAMOL [Concomitant]
     Route: 048
     Dates: start: 20100527
  3. PREDNISONE [Suspect]
     Route: 048
     Dates: end: 20100625
  4. AMITRIPTYLINE HCL [Concomitant]
     Indication: DEPRESSION
     Route: 048
  5. FENTANYL [Concomitant]
     Route: 062
     Dates: start: 20100513, end: 20100524
  6. NATRIUM PICOSULFAAT [Concomitant]
     Route: 048
     Dates: start: 20100527, end: 20100527
  7. NATRIUM PICOSULFAAT [Concomitant]
     Route: 048
     Dates: start: 20100528, end: 20100530
  8. OXYCODON [Concomitant]
     Indication: RIB FRACTURE
     Route: 048
     Dates: start: 20100526, end: 20100527
  9. MELPHALAN [Suspect]
     Indication: MULTIPLE MYELOMA
     Route: 048
     Dates: start: 20100520, end: 20100625
  10. OMEPRAZOLE [Concomitant]
     Indication: PROPHYLAXIS
     Route: 048
  11. NATRIUM PICOSULFAAT [Concomitant]
     Indication: CONSTIPATION
     Route: 048
     Dates: start: 20100522, end: 20100527
  12. MORPHINE SULFATE [Concomitant]
     Route: 048
     Dates: start: 20100522, end: 20100522
  13. MOVICOL [Concomitant]
     Route: 048
     Dates: end: 20100527
  14. MORPHINE SULFATE [Concomitant]
     Indication: RIB FRACTURE
     Route: 048
     Dates: start: 20100523, end: 20100523
  15. MORPHINE SULFATE [Concomitant]
     Route: 048
     Dates: start: 20100524, end: 20100524
  16. MORPHINE SULFATE [Concomitant]
     Route: 048
     Dates: start: 20100525, end: 20100525
  17. OXYCODON [Concomitant]
     Route: 048
     Dates: start: 20100603
  18. THALIDOMIDE [Suspect]
     Indication: MULTIPLE MYELOMA
     Route: 048
     Dates: start: 20100520
  19. PREDNISONE [Suspect]
     Indication: MULTIPLE MYELOMA
     Route: 048
     Dates: start: 20100520, end: 20100523
  20. ENOXAPARIN [Concomitant]
     Indication: THROMBOSIS PROPHYLAXIS
     Route: 058
     Dates: start: 20100415
  21. CETIRIZINE HYDROCHLORIDE [Concomitant]
     Indication: PROPHYLAXIS
     Route: 048
     Dates: start: 20100522
  22. DINATRIUM PAMIDRONAAT [Concomitant]
     Indication: OSTEOPOROSIS PROPHYLAXIS
     Route: 051
     Dates: start: 20100527, end: 20100527
  23. MOVICOL [Concomitant]
     Indication: CONSTIPATION
     Route: 048
     Dates: end: 20100504
  24. MOVICOL [Concomitant]
     Route: 048
     Dates: start: 20100528, end: 20100531
  25. PREGABALIN [Concomitant]
     Route: 048
  26. FENTANYL [Concomitant]
     Indication: RIB FRACTURE
     Route: 062
     Dates: start: 20100525, end: 20100525
  27. FENTANYL [Concomitant]
     Route: 062
     Dates: start: 20100528
  28. MORPHINE SULFATE [Concomitant]
     Route: 048
     Dates: start: 20100526, end: 20100526
  29. PARACETAMOL [Concomitant]
     Indication: RIB FRACTURE
     Route: 048
     Dates: start: 20100522, end: 20100524
  30. FUROSEMIDE [Concomitant]
     Route: 051
     Dates: start: 20100528, end: 20100530
  31. OXYCODON [Concomitant]
     Route: 048
     Dates: start: 20100528, end: 20100529
  32. MOVICOL [Concomitant]
     Route: 048
     Dates: start: 20100601
  33. VERAPAMIL HYDROCHLORIDE [Concomitant]
     Indication: HYPERTENSION
     Route: 048
  34. FERO-GRAD [Concomitant]
     Indication: IRON DEFICIENCY
     Route: 048
     Dates: start: 20100527
  35. THALIDOMIDE [Suspect]
     Route: 048
     Dates: start: 20100526, end: 20100625
  36. ASPIRIN [Concomitant]
     Indication: THROMBOSIS PROPHYLAXIS
     Route: 048
  37. PARACETAMOL [Concomitant]
     Route: 048
     Dates: start: 20100525, end: 20100525

REACTIONS (3)
  - MALAISE [None]
  - SLEEP APNOEA SYNDROME [None]
  - PYREXIA [None]
